FAERS Safety Report 6668929-1 (Version None)
Quarter: 2010Q2

REPORT INFORMATION
  Report Type: 
  Country: None (occurrence: None)
  Receive Date: 20100406
  Receipt Date: 20100402
  Transmission Date: 20101027
  Serious: Yes (Other)
  Sender: FDA-Public Use
  Company Number: US-SANOFI-AVENTIS-2010SA018043

PATIENT
  Age: 69 Year
  Sex: Female
  Weight: 69.9 kg

DRUGS (9)
  1. PLAVIX [Suspect]
     Indication: PALPITATIONS
     Route: 048
     Dates: start: 19900101
  2. PLAVIX [Suspect]
     Route: 048
     Dates: start: 19900101
  3. DIOVAN HCT [Concomitant]
     Indication: HYPERTENSION
     Dosage: 80/12.5MG
     Route: 065
  4. LESCOL [Concomitant]
  5. ASPIRIN [Concomitant]
     Route: 048
  6. ALL OTHER THERAPEUTIC PRODUCTS [Concomitant]
     Indication: ARTHRITIS
  7. ANALGESICS [Concomitant]
  8. GLYBURIDE [Concomitant]
  9. TRENTAL [Concomitant]
     Indication: ARTERIOSCLEROSIS

REACTIONS (3)
  - BLINDNESS UNILATERAL [None]
  - CAROTID ARTERY OCCLUSION [None]
  - OFF LABEL USE [None]
